FAERS Safety Report 11838924 (Version 1)
Quarter: 2015Q4

REPORT INFORMATION
  Report Type: Spontaneous
  Country: IN (occurrence: IN)
  Receive Date: 20151216
  Receipt Date: 20151216
  Transmission Date: 20160305
  Serious: No
  Sender: FDA-Public Use
  Company Number: IN-LUPIN PHARMACEUTICALS INC.-E2B_00004210

PATIENT
  Age: 19 Year
  Sex: Male

DRUGS (5)
  1. CEFAXONE [Suspect]
     Active Substance: CEFTRIAXONE
     Indication: TYPHOID FEVER
     Dosage: 2 INJECTIONS
     Route: 042
     Dates: start: 20150911
  2. PANPLUS D 40 [Concomitant]
     Indication: PYREXIA
     Route: 048
     Dates: start: 20150913
  3. PANPLUS 40 [Concomitant]
     Indication: PYREXIA
     Route: 048
     Dates: start: 20150914
  4. DVN PLUS [Concomitant]
     Indication: PYREXIA
     Route: 048
     Dates: start: 20150913
  5. CROCIN ADVANCE [Concomitant]
     Indication: PYREXIA
     Route: 048
     Dates: start: 20150911

REACTIONS (2)
  - Product use issue [Unknown]
  - Hypersensitivity [Not Recovered/Not Resolved]

NARRATIVE: CASE EVENT DATE: 20150914
